FAERS Safety Report 8366810-3 (Version None)
Quarter: 2012Q2

REPORT INFORMATION
  Report Type: 
  Country: None (occurrence: None)
  Receive Date: 20120517
  Receipt Date: 20120509
  Transmission Date: 20120825
  Serious: Yes (Life-Threatening, Hospitalization, Other)
  Sender: FDA-Public Use
  Company Number: CA-ROCHE-GNE300545

PATIENT
  Sex: Male
  Weight: 80 kg

DRUGS (3)
  1. TENECTEPLASE [Suspect]
     Indication: ACUTE MYOCARDIAL INFARCTION
     Dosage: 45 MG, 50 MG, BOLUS
     Route: 042
     Dates: start: 20100204
  2. ENOXAPARIN SODIUM [Suspect]
     Indication: ACUTE MYOCARDIAL INFARCTION
     Dosage: 30 MG AND 80 MG
     Route: 042
     Dates: start: 20100204
  3. CLOPIDOGREL BISULFATE [Suspect]
     Indication: ACUTE MYOCARDIAL INFARCTION
     Route: 048
     Dates: start: 20100204

REACTIONS (4)
  - HAEMOTHORAX [None]
  - CARDIAC ARREST [None]
  - HAEMOGLOBIN DECREASED [None]
  - VENTRICULAR FIBRILLATION [None]
